FAERS Safety Report 4933187-2 (Version None)
Quarter: 2006Q1

REPORT INFORMATION
  Report Type: 
  Country: None (occurrence: None)
  Receive Date: 20060306
  Receipt Date: 20050616
  Transmission Date: 20060701
  Serious: Yes (Hospitalization, Disabling)
  Sender: FDA-Public Use
  Company Number: US-MERCK-0506USA02705

PATIENT
  Age: 58 Year
  Sex: Female
  Weight: 70 kg

DRUGS (2)
  1. VIOXX [Suspect]
     Indication: ARTHRALGIA
     Route: 048
     Dates: start: 20020201
  2. VIOXX [Suspect]
     Route: 048
     Dates: end: 20031101

REACTIONS (4)
  - CEREBROVASCULAR ACCIDENT [None]
  - NAUSEA [None]
  - PAIN [None]
  - TRANSIENT ISCHAEMIC ATTACK [None]
